FAERS Safety Report 9375369 (Version 2)
Quarter: 2013Q3

REPORT INFORMATION
  Report Type: Spontaneous
  Country: US (occurrence: US)
  Receive Date: 20130628
  Receipt Date: 20130724
  Transmission Date: 20140515
  Serious: Yes (Other)
  Sender: FDA-Public Use
  Company Number: US-JNJFOC-20130617549

PATIENT
  Age: 16 Year
  Sex: Male
  Weight: 64.9 kg

DRUGS (10)
  1. REMICADE [Suspect]
     Indication: CROHN^S DISEASE
     Dosage: THIRD INFUSION
     Route: 042
     Dates: start: 20130516
  2. REMICADE [Suspect]
     Indication: CROHN^S DISEASE
     Dosage: SECOND INFUSION
     Route: 042
     Dates: start: 20130415
  3. REMICADE [Suspect]
     Indication: CROHN^S DISEASE
     Dosage: LOADING DOSE
     Route: 042
     Dates: start: 20130402
  4. BENADRYL [Suspect]
     Indication: PREMEDICATION
     Dosage: ONCE
     Route: 048
     Dates: start: 20130516
  5. BENADRYL [Suspect]
     Indication: PREMEDICATION
     Dosage: ONCE
     Route: 048
     Dates: start: 20130415
  6. BENADRYL [Suspect]
     Indication: PREMEDICATION
     Dosage: ONCE
     Route: 048
     Dates: start: 20130402
  7. KEPRA [Concomitant]
     Indication: CONVULSION
     Dosage: DAILY FOR MANY YEARS
     Route: 048
  8. KEPRA [Concomitant]
     Indication: CONVULSION
     Dosage: DOSE INCREASED
     Route: 048
  9. PENTASA [Concomitant]
     Indication: CROHN^S DISEASE
     Dosage: DAILY FOR MANY YEARS
     Route: 048
  10. LORATADINE [Concomitant]
     Indication: SEASONAL ALLERGY
     Dosage: DAILY
     Route: 048

REACTIONS (2)
  - Convulsion [Recovered/Resolved]
  - Frequent bowel movements [Unknown]
